FAERS Safety Report 5069880-3 (Version None)
Quarter: 2006Q3

REPORT INFORMATION
  Report Type: 
  Country: None (occurrence: None)
  Receive Date: 20060803
  Receipt Date: 20060727
  Transmission Date: 20061208
  Serious: Yes (Hospitalization, Other)
  Sender: FDA-Public Use
  Company Number: US-BRISTOL-MYERS SQUIBB COMPANY-13457809

PATIENT
  Age: 6 Decade
  Sex: Female
  Weight: 61 kg

DRUGS (3)
  1. TEQUIN [Suspect]
     Indication: BRONCHITIS
     Dates: start: 20040101
  2. TEQUIN [Suspect]
     Indication: PHARYNGITIS
     Dates: start: 20040101
  3. AMARYL [Concomitant]

REACTIONS (2)
  - HYPOGLYCAEMIA [None]
  - LOSS OF CONSCIOUSNESS [None]
